FAERS Safety Report 10188014 (Version 1)
Quarter: 2014Q2

REPORT INFORMATION
  Report Type: Spontaneous
  Country: CL (occurrence: CL)
  Receive Date: 20140522
  Receipt Date: 20140522
  Transmission Date: 20141212
  Serious: Yes (Other)
  Sender: FDA-Public Use
  Company Number: CL-PFIZER INC-2014137757

PATIENT
  Age: 74 Year
  Sex: Female

DRUGS (4)
  1. XALATAN [Suspect]
     Indication: GLAUCOMA
     Dosage: TWO DROPS ON EACH EYE 1X/DAY
     Route: 047
  2. TRAVATAN [Concomitant]
     Dosage: UNK
  3. TIMOLOL [Concomitant]
     Dosage: UNK
  4. GLAUCOTENSIL /00971201/ [Concomitant]

REACTIONS (4)
  - Cataract [Unknown]
  - Optic nerve injury [Unknown]
  - Blindness [Unknown]
  - Visual acuity reduced [Unknown]
